FAERS Safety Report 7526678-1 (Version None)
Quarter: 2011Q2

REPORT INFORMATION
  Report Type: 
  Country: None (occurrence: None)
  Receive Date: 20110606
  Receipt Date: 20110531
  Transmission Date: 20111010
  Serious: Yes (Hospitalization)
  Sender: FDA-Public Use
  Company Number: IT-PFIZER INC-2010096404

PATIENT
  Age: 72 Year
  Sex: Female

DRUGS (6)
  1. OMEPRAZOLE [Concomitant]
  2. CALCIUM CARBONATE/COLECALCIFEROL [Concomitant]
  3. ATENOLOL [Concomitant]
  4. MEDROL [Suspect]
     Indication: RHEUMATOID ARTHRITIS
     Dosage: 4 MG, X/DAY
     Route: 048
     Dates: start: 20090625
  5. DICLOFENAC SODIUM [Suspect]
     Indication: RHEUMATOID ARTHRITIS
     Dosage: 100 MG, X/DAY
     Route: 054
     Dates: start: 20090625, end: 20091227
  6. METHOTREXATE [Suspect]
     Indication: RHEUMATOID ARTHRITIS
     Dosage: 15 MG, WEEKLY
     Route: 030
     Dates: start: 20090625

REACTIONS (2)
  - GASTRIC ULCER [None]
  - PERITONITIS [None]
